FAERS Safety Report 5387895-2 (Version None)
Quarter: 2007Q3

REPORT INFORMATION
  Report Type: 
  Country: None (occurrence: None)
  Receive Date: 20070716
  Receipt Date: 20060821
  Transmission Date: 20080115
  Serious: No
  Sender: FDA-Public Use
  Company Number: A0617216A

PATIENT

DRUGS (1)
  1. NICORETTE [Suspect]

REACTIONS (4)
  - ANXIETY [None]
  - DYSPNOEA [None]
  - HEADACHE [None]
  - INTENTIONAL DRUG MISUSE [None]
